FAERS Safety Report 11399276 (Version 1)
Quarter: 2015Q3

REPORT INFORMATION
  Report Type: Spontaneous
  Country: US (occurrence: None)
  Receive Date: 20150819
  Receipt Date: 20150819
  Transmission Date: 20151125
  Serious: Yes (Other)
  Sender: FDA-Public Use
  Company Number: None

PATIENT
  Age: 59 Year
  Sex: Female
  Weight: 65.77 kg

DRUGS (3)
  1. PROBIOTIC [Concomitant]
     Active Substance: PROBIOTICS NOS
  2. LEVAQUIN [Suspect]
     Active Substance: LEVOFLOXACIN
     Indication: PNEUMONIA
     Dosage: 2 PER DAY DOSES FOR 14 DAYS, TWICE DAILY, TAKEN BY MOUTH
     Route: 048
  3. VANOMYCIN [Concomitant]

REACTIONS (4)
  - Fatigue [None]
  - Back pain [None]
  - Clostridium difficile infection [None]
  - Headache [None]

NARRATIVE: CASE EVENT DATE: 20150818
